FAERS Safety Report 18135248 (Version 6)
Quarter: 2021Q2

REPORT INFORMATION
  Report Type: Spontaneous
  Country: US (occurrence: US)
  Receive Date: 20200811
  Receipt Date: 20210625
  Transmission Date: 20210717
  Serious: Yes (Hospitalization, Other)
  Sender: FDA-Public Use
  Company Number: US-PFIZER INC-2020306866

PATIENT
  Age: 73 Year
  Sex: Female
  Weight: 140 kg

DRUGS (3)
  1. LYRICA [Suspect]
     Active Substance: PREGABALIN
     Indication: RHEUMATOID ARTHRITIS
     Dosage: 300 MG, 2X/DAY (IN AM AND PM)
     Dates: start: 2019, end: 202007
  2. LYRICA [Suspect]
     Active Substance: PREGABALIN
     Indication: OSTEOARTHRITIS
     Dosage: UNK UNK, 3X/DAY (1?2 CAPSULES THREE TIMES A DAY)
     Route: 048
  3. LYRICA [Suspect]
     Active Substance: PREGABALIN
     Indication: BACK PAIN

REACTIONS (4)
  - Femur fracture [Recovering/Resolving]
  - Small intestinal obstruction [Recovering/Resolving]
  - Accident [Unknown]
  - Fall [Unknown]

NARRATIVE: CASE EVENT DATE: 202005
